FAERS Safety Report 9808060 (Version 1)
Quarter: 2014Q1

REPORT INFORMATION
  Report Type: Report from Study
  Country: US (occurrence: US)
  Receive Date: 20140110
  Receipt Date: 20140110
  Transmission Date: 20141002
  Serious: Yes (Death, Hospitalization)
  Sender: FDA-Public Use
  Company Number: US-GLAXOSMITHKLINE-A1056027A

PATIENT
  Age: 71 Year
  Sex: Male

DRUGS (14)
  1. ONDANSETRON [Suspect]
     Indication: PROPHYLAXIS OF NAUSEA AND VOMITING
     Dates: start: 20111025, end: 20130707
  2. PAROXETINE [Suspect]
     Indication: DEPRESSION
     Dates: start: 20111025, end: 20130707
  3. LOVENOX [Suspect]
  4. MORPHINE [Suspect]
  5. WARFARIN [Suspect]
     Indication: PULMONARY EMBOLISM
     Dates: start: 20130501, end: 20130707
  6. INVESTIGATIONAL DRUG [Suspect]
     Indication: COLORECTAL CANCER METASTATIC
     Dosage: 70MG TWICE PER DAY
     Route: 048
     Dates: start: 20130530, end: 20130610
  7. VITAMIN B12 [Suspect]
     Indication: VITAMIN SUPPLEMENTATION
     Dates: start: 20111025, end: 20130707
  8. COLACE [Suspect]
     Indication: CONSTIPATION
     Dates: start: 20130514, end: 20130707
  9. LORAZEPAM [Suspect]
     Indication: ANXIETY
     Dates: start: 20130506, end: 20130707
  10. OXYCODONE [Suspect]
     Indication: PAIN PROPHYLAXIS
     Dates: start: 20130530, end: 20130707
  11. VITAMIN B COMPLEX [Suspect]
     Indication: VITAMIN SUPPLEMENTATION
     Dates: start: 20130514, end: 20130707
  12. METOPROLOL [Suspect]
     Indication: HYPERTENSION
     Dates: start: 20110823, end: 20130707
  13. ATROPINE SULFATE\DIPHENOXYLATE [Suspect]
     Indication: DIARRHOEA
     Dates: start: 20111212, end: 20130707
  14. VITAMIN D3 [Suspect]

REACTIONS (4)
  - Cardio-respiratory arrest [Fatal]
  - Renal failure [Fatal]
  - Acidosis [Fatal]
  - Haemorrhage intracranial [Fatal]
